FAERS Safety Report 6809740-8 (Version None)
Quarter: 2010Q2

REPORT INFORMATION
  Report Type: 
  Country: None (occurrence: None)
  Receive Date: 20100630
  Receipt Date: 20100621
  Transmission Date: 20101027
  Serious: Yes (Hospitalization)
  Sender: FDA-Public Use
  Company Number: JP-JNJFOC-20100600554

PATIENT
  Age: 26 Year
  Sex: Male

DRUGS (3)
  1. INTELENCE [Suspect]
     Indication: HIV INFECTION
     Route: 048
  2. EPZICOM [Suspect]
     Indication: HIV INFECTION
     Route: 048
  3. RALTEGRAVIR [Concomitant]
     Indication: DRUG USE FOR UNKNOWN INDICATION

REACTIONS (1)
  - MUSCULAR WEAKNESS [None]
